FAERS Safety Report 8017520-3 (Version None)
Quarter: 2011Q4

REPORT INFORMATION
  Report Type: 
  Country: None (occurrence: None)
  Receive Date: 20111228
  Receipt Date: 20111228
  Transmission Date: 20120403
  Serious: Yes (Other)
  Sender: FDA-Public Use
  Company Number: None

PATIENT
  Age: 61 Year
  Sex: Female
  Weight: 57.6068 kg

DRUGS (3)
  1. LEVOFLOXACIN [Suspect]
  2. LEVOFLOXACIN [Suspect]
     Indication: URINARY TRACT INFECTION
     Dosage: 1 TAB 1X DAILY ORAL
     Route: 048
     Dates: start: 20111201
  3. LEVOFLOXACIN [Suspect]
     Indication: PNEUMONIA
     Dosage: 1 TAB 1X DAILY ORAL
     Route: 048
     Dates: start: 20111201

REACTIONS (3)
  - TENDON PAIN [None]
  - SYSTEMIC LUPUS ERYTHEMATOSUS [None]
  - GAIT DISTURBANCE [None]
